FAERS Safety Report 4832082-7 (Version None)
Quarter: 2005Q4

REPORT INFORMATION
  Report Type: 
  Country: None (occurrence: None)
  Receive Date: 20051116
  Receipt Date: 20051024
  Transmission Date: 20060501
  Serious: Yes (Other)
  Sender: FDA-Public Use
  Company Number: MED000095

PATIENT
  Age: 40 Year
  Sex: Male

DRUGS (1)
  1. LACTATED RINGER'S IN PLASTIC CONTAINER [Suspect]

REACTIONS (2)
  - CARDIAC OUTPUT DECREASED [None]
  - HYPOTENSION [None]
